FAERS Safety Report 5329728-6 (Version None)
Quarter: 2007Q2

REPORT INFORMATION
  Report Type: 
  Country: None (occurrence: None)
  Receive Date: 20070515
  Receipt Date: 20070503
  Transmission Date: 20071010
  Serious: Yes (Death, Hospitalization)
  Sender: FDA-Public Use
  Company Number: 2006-01400

PATIENT
  Age: 59 Year
  Sex: Male
  Weight: 65 kg

DRUGS (7)
  1. VELCADE [Suspect]
     Indication: T-CELL LYMPHOMA
     Dosage: 2.76 MG, INTRAVENOUS
     Route: 042
     Dates: start: 20060408, end: 20060516
  2. VINCRISTINE [Suspect]
     Indication: T-CELL LYMPHOMA
     Dosage: 3.68 MG, INTRAVENOUS
     Route: 042
     Dates: start: 20060408, end: 20060516
  3. DOXIL [Suspect]
     Indication: T-CELL LYMPHOMA
     Dosage: 138.00 MG, INTRAVENOUS
     Route: 042
     Dates: start: 20060408, end: 20060512
  4. CYCLOPHOSPHAMIDE [Suspect]
     Indication: T-CELL LYMPHOMA
     Dosage: 2210.00 MG, INTRAVENOUS
     Route: 042
     Dates: start: 20060408, end: 20060512
  5. METHOTREXATE [Suspect]
     Indication: T-CELL LYMPHOMA
     Dosage: 15.00 MG
     Dates: start: 20060411, end: 20060512
  6. PREDNISONE [Suspect]
     Indication: T-CELL LYMPHOMA
     Dosage: 110.00 MG, ORAL
     Route: 048
     Dates: start: 20060408, end: 20060516
  7. BLEOMYCIN [Suspect]
     Indication: T-CELL LYMPHOMA
     Dosage: 10.00 MG, INTRAVENOUS
     Route: 042
     Dates: start: 20060408, end: 20060516

REACTIONS (16)
  - ABDOMINAL PAIN UPPER [None]
  - ABDOMINAL RIGIDITY [None]
  - C-REACTIVE PROTEIN INCREASED [None]
  - CHEST PAIN [None]
  - COUGH [None]
  - DISEASE PROGRESSION [None]
  - FEBRILE NEUTROPENIA [None]
  - HAEMOGLOBIN DECREASED [None]
  - HISTIOCYTOSIS HAEMATOPHAGIC [None]
  - LEUKOPENIA [None]
  - NO THERAPEUTIC RESPONSE [None]
  - PERIPHERAL T-CELL LYMPHOMA UNSPECIFIED [None]
  - PULMONARY HAEMORRHAGE [None]
  - RENAL FAILURE ACUTE [None]
  - SPLENOMEGALY [None]
  - THROMBOCYTOPENIA [None]
